FAERS Safety Report 8999756 (Version 1)
Quarter: 2013Q1

REPORT INFORMATION
  Report Type: Spontaneous
  Country: US (occurrence: US)
  Receive Date: 20130102
  Receipt Date: 20130102
  Transmission Date: 20140127
  Serious: Yes (Hospitalization, Other)
  Sender: FDA-Public Use
  Company Number: US-ALEXION PHARMACEUTICALS INC.-A201202486

PATIENT
  Sex: Male

DRUGS (1)
  1. SOLIRIS 300MG [Suspect]
     Indication: FAMILIAL RISK FACTOR
     Dosage: IN UTERO EXPOSURE
     Route: 015

REACTIONS (4)
  - Premature baby [Recovered/Resolved]
  - Apgar score low [Unknown]
  - Patent ductus arteriosus [Recovered/Resolved]
  - Inguinal hernia [Recovered/Resolved]
